FAERS Safety Report 7304878-3 (Version None)
Quarter: 2011Q1

REPORT INFORMATION
  Report Type: 
  Country: None (occurrence: None)
  Receive Date: 20110222
  Receipt Date: 20110210
  Transmission Date: 20110831
  Serious: Yes (Other)
  Sender: FDA-Public Use
  Company Number: US-US-EMD SERONO, INC.-7037969

PATIENT
  Sex: Female

DRUGS (16)
  1. IBUPROFEN [Concomitant]
     Dates: start: 20051108
  2. SOLU-MEDROL [Concomitant]
     Indication: PROPHYLAXIS
     Route: 042
     Dates: start: 20060405, end: 20060406
  3. IV METHYPREDNISOLONE [Concomitant]
     Route: 042
     Dates: start: 20060607, end: 20060611
  4. COPAXONE [Concomitant]
     Indication: MULTIPLE SCLEROSIS
     Dates: start: 20060122, end: 20060201
  5. SOLU-MEDROL [Concomitant]
     Indication: MULTIPLE SCLEROSIS RELAPSE
     Route: 042
     Dates: start: 20051209, end: 20051211
  6. PREDNISONE [Concomitant]
     Indication: MULTIPLE SCLEROSIS RELAPSE
     Dates: start: 20060202
  7. PROTONIX [Concomitant]
     Indication: PRODUCT USED FOR UNKNOWN INDICATION
     Dates: start: 20060101
  8. IBUPROFEN [Concomitant]
     Indication: HEADACHE
     Dates: start: 20051108
  9. SOLU-MEDROL [Concomitant]
     Route: 042
     Dates: start: 20060723, end: 20060724
  10. PREDNISONE [Concomitant]
     Indication: PROPHYLAXIS
     Dates: start: 20060612
  11. PREDNISONE [Concomitant]
     Dates: start: 20060701, end: 20060816
  12. REBIF [Suspect]
     Indication: MULTIPLE SCLEROSIS
     Route: 058
     Dates: start: 20050907, end: 20051005
  13. MOTRIN [Concomitant]
     Indication: HEADACHE
     Dosage: UP TO 2 PILLS, PRN
     Route: 048
  14. MAXIFED [Concomitant]
     Indication: SINUSITIS
     Dates: start: 20060128
  15. MAXIFED [Concomitant]
     Dates: start: 20060131
  16. IV METHYPREDNISOLONE [Concomitant]
     Indication: MULTIPLE SCLEROSIS RELAPSE
     Route: 042
     Dates: start: 20060128, end: 20060201

REACTIONS (1)
  - AUTOIMMUNE HEPATITIS [None]
